FAERS Safety Report 10479379 (Version 2)
Quarter: 2014Q4

REPORT INFORMATION
  Report Type: Spontaneous
  Country: FR (occurrence: CZ)
  Receive Date: 20140926
  Receipt Date: 20141223
  Transmission Date: 20150528
  Serious: Yes (Other)
  Sender: FDA-Public Use
  Company Number: CZ-FRI-1000070906

PATIENT
  Age: 70 Year
  Sex: Female

DRUGS (4)
  1. MILNACIPRAN [Suspect]
     Active Substance: MILNACIPRAN
     Indication: DEPRESSION
     Dosage: 100 MG
     Dates: start: 20140915
  2. NEUROL [Concomitant]
  3. CIPRALEX [Concomitant]
     Active Substance: ESCITALOPRAM OXALATE
  4. MILNACIPRAN [Suspect]
     Active Substance: MILNACIPRAN
     Indication: PANIC DISORDER

REACTIONS (4)
  - Hypertension [Recovered/Resolved]
  - Vertigo [Recovered/Resolved]
  - Off label use [Recovered/Resolved]
  - Hyperhidrosis [Recovered/Resolved]

NARRATIVE: CASE EVENT DATE: 20140915
